FAERS Safety Report 21595905 (Version 1)
Quarter: 2022Q4

REPORT INFORMATION
  Report Type: Spontaneous
  Country: CN (occurrence: CN)
  Receive Date: 20221115
  Receipt Date: 20221115
  Transmission Date: 20230112
  Serious: Yes (Other)
  Sender: FDA-Public Use
  Company Number: CN-JNJFOC-20221123814

PATIENT

DRUGS (1)
  1. RHINOCORT AQUA [Suspect]
     Active Substance: BUDESONIDE
     Indication: Sinusitis
     Route: 045

REACTIONS (5)
  - Eye abscess [Unknown]
  - Off label use [Unknown]
  - Upper respiratory tract infection [Unknown]
  - Periostitis [Unknown]
  - Therapeutic response unexpected [Unknown]
